FAERS Safety Report 6846052-0 (Version None)
Quarter: 2010Q3

REPORT INFORMATION
  Report Type: 
  Country: None (occurrence: None)
  Receive Date: 20100712
  Receipt Date: 20100628
  Transmission Date: 20110219
  Serious: Yes (Hospitalization)
  Sender: FDA-Public Use
  Company Number: WAES 1002USA00149

PATIENT
  Age: 22 Year
  Sex: Male
  Weight: 79.8331 kg

DRUGS (2)
  1. ISENTRESS [Suspect]
     Indication: HIV INFECTION
     Dosage: 400 MG/ BID/ PO
     Route: 048
     Dates: start: 20090827
  2. EMTRICITABINE AND TENOFOVIR DISOPROXIL FUMARATE [Suspect]
     Indication: HIV INFECTION
     Dosage: 200 MG/ 300
     Dates: start: 20090827

REACTIONS (6)
  - ACTINOMYCOSIS [None]
  - ATYPICAL MYCOBACTERIAL LYMPHADENITIS [None]
  - FEEDING DISORDER [None]
  - IMMUNE RECONSTITUTION SYNDROME [None]
  - LYMPHADENOPATHY [None]
  - NECK PAIN [None]
